FAERS Safety Report 10050755 (Version 1)
Quarter: 2014Q2

REPORT INFORMATION
  Report Type: Spontaneous
  Country: US (occurrence: US)
  Receive Date: 20140401
  Receipt Date: 20140401
  Transmission Date: 20141212
  Serious: No
  Sender: FDA-Public Use
  Company Number: US-ASTRAZENECA-2013SE69935

PATIENT
  Age: 76 Year
  Sex: Male
  Weight: 74.8 kg

DRUGS (6)
  1. NEXIUM [Suspect]
     Indication: GASTROOESOPHAGEAL REFLUX DISEASE
     Route: 048
     Dates: start: 2003
  2. NEXIUM [Suspect]
     Indication: HIATUS HERNIA
     Route: 048
     Dates: start: 2003
  3. NEXIUM [Suspect]
     Indication: BARRETT^S OESOPHAGUS
     Route: 048
     Dates: start: 2003
  4. LAMOTRIGINE [Concomitant]
     Indication: BIPOLAR DISORDER
     Route: 048
     Dates: start: 2009
  5. VESICARE [Concomitant]
     Indication: INCONTINENCE
     Route: 048
     Dates: start: 201305
  6. TRAZADONE [Concomitant]
     Indication: SLEEP DISORDER
     Route: 048

REACTIONS (4)
  - Dysphagia [Unknown]
  - Body height decreased [Unknown]
  - Incontinence [Unknown]
  - Insomnia [Unknown]
